FAERS Safety Report 12996865 (Version 1)
Quarter: 2016Q4

REPORT INFORMATION
  Report Type: Spontaneous
  Country: GB (occurrence: GB)
  Receive Date: 20161205
  Receipt Date: 20161205
  Transmission Date: 20170207
  Serious: Yes (Other)
  Sender: FDA-Public Use
  Company Number: GB-ROCHE-1863167

PATIENT
  Age: 77 Year
  Sex: Male

DRUGS (1)
  1. PIRFENIDONE [Suspect]
     Active Substance: PIRFENIDONE
     Indication: IDIOPATHIC PULMONARY FIBROSIS
     Route: 048
     Dates: start: 20161019

REACTIONS (5)
  - Insomnia [Unknown]
  - Depression [Unknown]
  - Decreased appetite [Unknown]
  - Patient isolation [Unknown]
  - Suicidal ideation [Unknown]

NARRATIVE: CASE EVENT DATE: 20161024
